FAERS Safety Report 6415768-2 (Version None)
Quarter: 2009Q4

REPORT INFORMATION
  Report Type: 
  Country: None (occurrence: None)
  Receive Date: 20091022
  Receipt Date: 20091005
  Transmission Date: 20100525
  Serious: Yes (Hospitalization)
  Sender: FDA-Public Use
  Company Number: 374404

PATIENT
  Age: 9 Year
  Sex: Male

DRUGS (1)
  1. CEPACOL FIZZLERS - BENZOCAINE 6.0 MG [Suspect]
     Indication: OROPHARYNGEAL PAIN
     Dosage: 1 TABLET, ORALLY
     Route: 048
     Dates: start: 20091002

REACTIONS (3)
  - HEADACHE [None]
  - LOSS OF CONSCIOUSNESS [None]
  - SYNCOPE [None]
